FAERS Safety Report 19834787 (Version 2)
Quarter: 2022Q1

REPORT INFORMATION
  Report Type: Report from Study
  Country: CA (occurrence: CA)
  Receive Date: 20210915
  Receipt Date: 20220129
  Transmission Date: 20220423
  Serious: Yes (Other)
  Sender: FDA-Public Use
  Company Number: CA-ABBVIE-21K-028-4075322-00

PATIENT
  Sex: Female

DRUGS (1)
  1. HUMIRA [Suspect]
     Active Substance: ADALIMUMAB
     Indication: Uveitis
     Route: 058
     Dates: start: 20210506

REACTIONS (10)
  - Iris disorder [Recovering/Resolving]
  - Eye injury [Unknown]
  - Cataract [Recovering/Resolving]
  - Eye laser surgery [Recovering/Resolving]
  - Lenticular opacities [Unknown]
  - Eye inflammation [Recovering/Resolving]
  - Eye disorder [Recovering/Resolving]
  - Eye disorder [Recovering/Resolving]
  - Drug ineffective [Not Recovered/Not Resolved]
  - Injection site pain [Not Recovered/Not Resolved]

NARRATIVE: CASE EVENT DATE: 20210101
